FAERS Safety Report 4961887-7 (Version None)
Quarter: 2006Q2

REPORT INFORMATION
  Report Type: 
  Country: None (occurrence: None)
  Receive Date: 20060404
  Receipt Date: 20060309
  Transmission Date: 20061013
  Serious: Yes (Life-Threatening, Hospitalization)
  Sender: FDA-Public Use
  Company Number: 2006SE01425

PATIENT
  Age: 60 Year
  Sex: Male

DRUGS (7)
  1. ZOLADEX [Suspect]
     Indication: PROSTATE CANCER
     Route: 058
     Dates: start: 20050901, end: 20060301
  2. DIAMICRON [Concomitant]
     Indication: DIABETES MELLITUS
     Route: 048
     Dates: end: 20051222
  3. MORPHINE [Concomitant]
     Indication: PAIN
  4. CITALOPRAM [Concomitant]
     Indication: DEPRESSION
     Route: 048
     Dates: start: 20051212, end: 20051222
  5. METFORMIN [Concomitant]
     Indication: DIABETES MELLITUS
     Route: 048
     Dates: end: 20051222
  6. DF-118 [Concomitant]
     Indication: ANALGESIC EFFECT
     Route: 048
     Dates: start: 20051111, end: 20051222
  7. PERINDOPRIL [Concomitant]
     Indication: HYPERTENSION
     Route: 048
     Dates: end: 20051222

REACTIONS (2)
  - HYPOGLYCAEMIC COMA [None]
  - RENAL FAILURE [None]
